FAERS Safety Report 9757915 (Version 2)
Quarter: 2013Q4

REPORT INFORMATION
  Report Type: Spontaneous
  Country: US (occurrence: US)
  Receive Date: 20131216
  Receipt Date: 20131220
  Transmission Date: 20140711
  Serious: Yes (Hospitalization, Other)
  Sender: FDA-Public Use
  Company Number: US-BEH-2013039308

PATIENT
  Age: 5 Year
  Sex: Female
  Weight: 18.5 kg

DRUGS (8)
  1. CYTOGAM [Suspect]
     Route: 042
     Dates: start: 20131127, end: 20131127
  2. CYTOGAM [Suspect]
     Indication: ANTIVIRAL PROPHYLAXIS
     Route: 042
     Dates: start: 20131015
  3. CYTOGAM [Suspect]
     Route: 042
     Dates: start: 20131029
  4. CYTOGAM [Suspect]
     Route: 042
     Dates: start: 20131113
  5. IVIG [Suspect]
     Indication: INFECTION PROPHYLAXIS
     Route: 042
     Dates: start: 20131008, end: 20131020
  6. IVIG [Suspect]
     Route: 042
     Dates: start: 20131105
  7. IVIG [Suspect]
     Route: 042
     Dates: start: 20131120
  8. UNSPECIFIED INGREDIENTS [Suspect]
     Dates: start: 20131127

REACTIONS (9)
  - Haematuria [Unknown]
  - Body temperature increased [Unknown]
  - Chills [Recovering/Resolving]
  - Nausea [Unknown]
  - Vomiting [Unknown]
  - Anxiety [Unknown]
  - Haemolysis [Unknown]
  - Mental status changes [Unknown]
  - Haemoglobin decreased [Unknown]
